FAERS Safety Report 4709775-5 (Version None)
Quarter: 2005Q2

REPORT INFORMATION
  Report Type: 
  Country: None (occurrence: None)
  Receive Date: 20050629
  Receipt Date: 20050531
  Transmission Date: 20051028
  Serious: No
  Sender: FDA-Public Use
  Company Number: 05P-163-0301948-00

PATIENT
  Age: 51 Year
  Sex: Female
  Weight: 77.1115 kg

DRUGS (6)
  1. HUMIRA [Suspect]
     Indication: RHEUMATOID ARTHRITIS
     Dosage: 40 MG, 1 IN 2 WK, SUBCUTANEOUS
     Route: 058
     Dates: start: 20030101
  2. METHOTREXATE [Concomitant]
  3. FOLIC ACID [Concomitant]
  4. B-KOMPLEX ^LECIVA^ [Concomitant]
  5. LEXAPRO [Concomitant]
  6. SUMATRIPTAN SUCCINATE [Concomitant]

REACTIONS (8)
  - COUGH [None]
  - HEADACHE [None]
  - HERPES ZOSTER [None]
  - HYPERSENSITIVITY [None]
  - HYPOAESTHESIA [None]
  - PARAESTHESIA [None]
  - PRURITUS GENERALISED [None]
  - VISUAL ACUITY REDUCED [None]
